FAERS Safety Report 25571927 (Version 1)
Quarter: 2025Q3

REPORT INFORMATION
  Report Type: Spontaneous
  Country: US (occurrence: US)
  Receive Date: 20250717
  Receipt Date: 20250717
  Transmission Date: 20251020
  Serious: No
  Sender: BAYER HEALTHCARE PHARMACEUTICALS INC.
  Company Number: US-BAYER-2025A092364

PATIENT
  Age: 22 Year
  Sex: Female

DRUGS (5)
  1. MIRENA [Suspect]
     Active Substance: LEVONORGESTREL
     Indication: Product used for unknown indication
     Dosage: 20?G/DAY
     Route: 015
  2. LUMRYZ [Suspect]
     Active Substance: SODIUM OXYBATE
     Indication: Narcolepsy
     Dosage: 4.5 G, QD
     Route: 048
     Dates: start: 202503, end: 202503
  3. LUMRYZ [Suspect]
     Active Substance: SODIUM OXYBATE
     Indication: Cataplexy
     Dosage: 6 G, QD
     Route: 048
     Dates: start: 2025, end: 2025
  4. LUMRYZ [Suspect]
     Active Substance: SODIUM OXYBATE
     Indication: Narcolepsy
     Dosage: 4.5 G, QD
     Route: 048
     Dates: start: 2025
  5. WAKIX [Concomitant]
     Active Substance: PITOLISANT HYDROCHLORIDE

REACTIONS (11)
  - Brain fog [None]
  - Sensation of foreign body [None]
  - Mood altered [Recovered/Resolved]
  - Abnormal behaviour [None]
  - Obsessive-compulsive disorder [None]
  - Vomiting [None]
  - Disorientation [None]
  - Dizziness [None]
  - Anxiety [None]
  - Depressed mood [None]
  - Depression [None]
